FAERS Safety Report 19278899 (Version 2)
Quarter: 2023Q2

REPORT INFORMATION
  Report Type: Spontaneous
  Country: US (occurrence: US)
  Receive Date: 20210520
  Receipt Date: 20230403
  Transmission Date: 20230721
  Serious: No
  Sender: FDA-Public Use
  Company Number: US-PFIZER INC-2018297652

PATIENT
  Age: 68 Year
  Sex: Female
  Weight: 63.05 kg

DRUGS (4)
  1. XELJANZ XR [Suspect]
     Active Substance: TOFACITINIB CITRATE
     Indication: Rheumatoid arthritis
     Dosage: 11 MG, 1X/DAY
  2. NYSTATIN [Concomitant]
     Active Substance: NYSTATIN
     Dosage: UNK
  3. RESTASIS [Concomitant]
     Active Substance: CYCLOSPORINE
     Dosage: UNK
  4. VALCYTE [Concomitant]
     Active Substance: VALGANCICLOVIR HYDROCHLORIDE
     Dosage: UNK

REACTIONS (1)
  - Mobility decreased [Unknown]
